FAERS Safety Report 7220625-8 (Version None)
Quarter: 2011Q1

REPORT INFORMATION
  Report Type: 
  Country: None (occurrence: None)
  Receive Date: 20110111
  Receipt Date: 20110106
  Transmission Date: 20110831
  Serious: Yes (Hospitalization)
  Sender: FDA-Public Use
  Company Number: NO-PFIZER INC-2011003504

PATIENT
  Age: 60 Year
  Sex: Male

DRUGS (2)
  1. ALDACTONE [Suspect]
  2. ALBYL-E [Concomitant]

REACTIONS (1)
  - EPISTAXIS [None]
